FAERS Safety Report 9455892 (Version 42)
Quarter: 2019Q2

REPORT INFORMATION
  Report Type: Report from Study
  Country: CA (occurrence: CA)
  Receive Date: 20130813
  Receipt Date: 20190504
  Transmission Date: 20190711
  Serious: Yes (Other)
  Sender: FDA-Public Use
  Company Number: CA-ROCHE-1136373

PATIENT
  Age: 48 Year
  Sex: Female
  Weight: 89 kg

DRUGS (15)
  1. PREDNISONE. [Suspect]
     Active Substance: PREDNISONE
     Indication: PRODUCT USED FOR UNKNOWN INDICATION
     Route: 048
     Dates: start: 20121015
  2. WELLBUTRIN [Suspect]
     Active Substance: BUPROPION HYDROCHLORIDE
     Indication: PRODUCT USED FOR UNKNOWN INDICATION
     Route: 048
  3. LOSEC [Concomitant]
     Active Substance: OMEPRAZOLE
  4. ACTEMRA [Suspect]
     Active Substance: TOCILIZUMAB
     Indication: RHEUMATOID ARTHRITIS
     Route: 042
     Dates: start: 20120823
  5. METHOTREXATE. [Suspect]
     Active Substance: METHOTREXATE
     Indication: PRODUCT USED FOR UNKNOWN INDICATION
     Route: 065
  6. METHOTREXATE. [Suspect]
     Active Substance: METHOTREXATE
     Route: 048
     Dates: start: 20130306
  7. PREDNISONE. [Suspect]
     Active Substance: PREDNISONE
     Dosage: DOSE INCREASED
     Route: 065
  8. METHOTREXATE. [Suspect]
     Active Substance: METHOTREXATE
     Dosage: DOSE INCREASED TO 6 MG FROM 4 MG.
     Route: 065
  9. PREDNISONE. [Suspect]
     Active Substance: PREDNISONE
     Route: 048
     Dates: start: 20130306
  10. FOLIC ACID. [Concomitant]
     Active Substance: FOLIC ACID
  11. WELLBUTRIN [Suspect]
     Active Substance: BUPROPION HYDROCHLORIDE
     Route: 048
  12. PROZAC [Concomitant]
     Active Substance: FLUOXETINE HYDROCHLORIDE
     Route: 048
  13. OMEPRAZOLE. [Concomitant]
     Active Substance: OMEPRAZOLE
  14. PROZAC [Concomitant]
     Active Substance: FLUOXETINE HYDROCHLORIDE
     Route: 048
  15. MOBICOX [Concomitant]
     Active Substance: MELOXICAM

REACTIONS (43)
  - Headache [Not Recovered/Not Resolved]
  - Pyrexia [Not Recovered/Not Resolved]
  - Diarrhoea [Recovering/Resolving]
  - Pain [Not Recovered/Not Resolved]
  - Aphthous ulcer [Unknown]
  - Urinary tract infection [Recovered/Resolved]
  - Infusion related reaction [Unknown]
  - Ear infection [Not Recovered/Not Resolved]
  - Pyrexia [Not Recovered/Not Resolved]
  - Blood pressure systolic increased [Unknown]
  - Pain [Unknown]
  - Nasopharyngitis [Not Recovered/Not Resolved]
  - Influenza like illness [Recovering/Resolving]
  - Weight decreased [Unknown]
  - Cough [Unknown]
  - Oropharyngeal pain [Not Recovered/Not Resolved]
  - Feeling hot [Not Recovered/Not Resolved]
  - Kidney infection [Recovered/Resolved]
  - Weight increased [Unknown]
  - Sinusitis [Unknown]
  - Migraine [Unknown]
  - Toothache [Not Recovered/Not Resolved]
  - Nasal congestion [Not Recovered/Not Resolved]
  - Vomiting [Unknown]
  - Chills [Not Recovered/Not Resolved]
  - Disability assessment scale score increased [Unknown]
  - Cluster headache [Unknown]
  - Fatigue [Not Recovered/Not Resolved]
  - Arthralgia [Unknown]
  - Cystitis [Recovering/Resolving]
  - Tremor [Unknown]
  - Costochondritis [Recovering/Resolving]
  - Mouth ulceration [Recovered/Resolved]
  - Lower respiratory tract infection [Recovered/Resolved]
  - Insomnia [Recovering/Resolving]
  - Rheumatoid arthritis [Recovered/Resolved]
  - Nausea [Not Recovered/Not Resolved]
  - Stress [Unknown]
  - Vertigo [Not Recovered/Not Resolved]
  - Tooth infection [Not Recovered/Not Resolved]
  - Stomatitis [Recovered/Resolved]
  - Nasopharyngitis [Unknown]
  - Blood pressure increased [Unknown]

NARRATIVE: CASE EVENT DATE: 201209
